FAERS Safety Report 7650290-7 (Version None)
Quarter: 2011Q3

REPORT INFORMATION
  Report Type: 
  Country: None (occurrence: None)
  Receive Date: 20110802
  Receipt Date: 20110725
  Transmission Date: 20111222
  Serious: Yes (Other)
  Sender: FDA-Public Use
  Company Number: SI-CUBIST-2011S1000488

PATIENT
  Age: 52 Year
  Sex: Female

DRUGS (1)
  1. CUBICIN [Suspect]
     Indication: SKIN ULCER
     Route: 042

REACTIONS (2)
  - PATHOGEN RESISTANCE [None]
  - STAPHYLOCOCCAL SEPSIS [None]
